FAERS Safety Report 7251277-9 (Version None)
Quarter: 2010Q4

REPORT INFORMATION
  Report Type: 
  Country: None (occurrence: None)
  Receive Date: 20101014
  Receipt Date: 20100928
  Transmission Date: 20110411
  Serious: Yes (Hospitalization)
  Sender: FDA-Public Use
  Company Number: GAM-275-10-US

PATIENT
  Sex: Male

DRUGS (1)
  1. OCTAGAM [Suspect]
     Indication: IMMUNODEFICIENCY COMMON VARIABLE
     Dates: start: 20100811

REACTIONS (3)
  - DEHYDRATION [None]
  - INFLUENZA LIKE ILLNESS [None]
  - WEIGHT DECREASED [None]
